FAERS Safety Report 9228024 (Version 1)
Quarter: 2013Q2

REPORT INFORMATION
  Report Type: Spontaneous
  Country: US (occurrence: US)
  Receive Date: 20130412
  Receipt Date: 20130412
  Transmission Date: 20140414
  Serious: Yes (Other)
  Sender: FDA-Public Use
  Company Number: US-PFIZER INC-2012269543

PATIENT
  Age: 65 Year
  Sex: Female
  Weight: 102 kg

DRUGS (8)
  1. CHANTIX [Suspect]
     Indication: SMOKING CESSATION THERAPY
     Dosage: UNK
  2. CHANTIX [Suspect]
     Dosage: 0.5 MG, DAILY
     Dates: start: 201209, end: 2012
  3. CHANTIX [Suspect]
     Dosage: 0.5 MG, 1X/DAY
     Dates: start: 201303
  4. CHANTIX [Suspect]
     Dosage: 1 MG, UNK
     Dates: start: 2013, end: 2013
  5. CHANTIX [Suspect]
     Dosage: UNK
     Dates: start: 2013
  6. SEROQUEL [Suspect]
     Dosage: 300 MG, DAILY
     Dates: start: 2012
  7. LOSARTAN POTASSIUM [Concomitant]
     Indication: HYPERTENSION
     Dosage: 100 MG, DAILY
  8. SYNTHROID [Concomitant]
     Dosage: 50 UG, UNK

REACTIONS (8)
  - Choking [Not Recovered/Not Resolved]
  - Circumstance or information capable of leading to medication error [Unknown]
  - Dyspnoea [Not Recovered/Not Resolved]
  - Insomnia [Not Recovered/Not Resolved]
  - Productive cough [Not Recovered/Not Resolved]
  - Rhinorrhoea [Not Recovered/Not Resolved]
  - Nasopharyngitis [Not Recovered/Not Resolved]
  - Cough [Not Recovered/Not Resolved]
